FAERS Safety Report 25003783 (Version 1)
Quarter: 2025Q1

REPORT INFORMATION
  Report Type: Spontaneous
  Country: US (occurrence: None)
  Receive Date: 20250221
  Receipt Date: 20250221
  Transmission Date: 20250409
  Serious: No
  Sender: FDA-CTU
  Company Number: None

PATIENT
  Age: 26 Year
  Sex: Female

DRUGS (1)
  1. ZURZUVAE [Suspect]
     Active Substance: ZURANOLONE
     Indication: Perinatal depression
     Dosage: 50 MG AT BEDTIME ORAL ?
     Route: 048

REACTIONS (7)
  - Drug ineffective [None]
  - Feeling abnormal [None]
  - Dizziness [None]
  - Anxiety [None]
  - Chest discomfort [None]
  - Emotional poverty [None]
  - Balance disorder [None]

NARRATIVE: CASE EVENT DATE: 20250208
